FAERS Safety Report 20249111 (Version 1)
Quarter: 2021Q4

REPORT INFORMATION
  Report Type: Spontaneous
  Country: US (occurrence: None)
  Receive Date: 20211228
  Receipt Date: 20211228
  Transmission Date: 20220304
  Serious: Yes (Hospitalization)
  Sender: FDA-Public Use
  Company Number: None

PATIENT
  Sex: Male

DRUGS (1)
  1. ENTECAVIR [Suspect]
     Active Substance: ENTECAVIR
     Indication: Bacteraemia
     Dosage: FREQUENCY : 180MG DAILY ORAL?
     Route: 048
     Dates: start: 20210910

REACTIONS (1)
  - Fluid retention [None]
